FAERS Safety Report 7019604-5 (Version None)
Quarter: 2010Q3

REPORT INFORMATION
  Report Type: 
  Country: None (occurrence: None)
  Receive Date: 20100928
  Receipt Date: 20100928
  Transmission Date: 20110219
  Serious: Yes (Hospitalization)
  Sender: FDA-Public Use
  Company Number: None

PATIENT
  Age: 88 Year
  Sex: Male
  Weight: 94.8018 kg

DRUGS (17)
  1. SORAFENIB, 400 MG BID, BAYER [Suspect]
     Indication: HEPATIC NEOPLASM MALIGNANT
     Dosage: 400 MG BID
     Dates: start: 20100611, end: 20100621
  2. DOXORUBICIN HYDROCHLORIDE [Suspect]
     Dosage: 100MG INTRA-ARTERIAL
     Route: 013
     Dates: start: 20100621
  3. KLOR-CON [Concomitant]
  4. FLOMAX [Concomitant]
  5. FOLIC ACID [Concomitant]
  6. ASPIRIN [Concomitant]
  7. COZAAR [Concomitant]
  8. METHOTREXATE [Concomitant]
  9. STOOL SOFTENER [Concomitant]
  10. NEXIUM [Concomitant]
  11. PROPOXYPHENE HCL [Concomitant]
  12. XANAX [Concomitant]
  13. DARVOCET [Concomitant]
  14. LASIX [Concomitant]
  15. OXYCODONE [Concomitant]
  16. ZOFRAN [Concomitant]
  17. CIPRO [Concomitant]

REACTIONS (7)
  - BLISTER [None]
  - ESCHERICHIA SEPSIS [None]
  - LIVER ABSCESS [None]
  - NAUSEA [None]
  - PAIN [None]
  - PYREXIA [None]
  - VOMITING [None]
